FAERS Safety Report 14479907 (Version 13)
Quarter: 2019Q2

REPORT INFORMATION
  Report Type: Report from Study
  Country: CN (occurrence: CN)
  Receive Date: 20180202
  Receipt Date: 20190522
  Transmission Date: 20190711
  Serious: Yes (Hospitalization)
  Sender: FDA-Public Use
  Company Number: CN-EISAI MEDICAL RESEARCH-EC-2018-035505

PATIENT
  Age: 60 Year
  Sex: Female
  Weight: 54 kg

DRUGS (17)
  1. LENVATINIB [Suspect]
     Active Substance: LENVATINIB
     Route: 048
     Dates: start: 20190107
  2. ADALAT [Concomitant]
     Active Substance: NIFEDIPINE
  3. AMINO ACID [Concomitant]
     Active Substance: AMINO ACIDS
  4. REDUCED GLUTATHIONE [Concomitant]
  5. SMETCA POWDER [Concomitant]
  6. LENVATINIB [Suspect]
     Active Substance: LENVATINIB
     Route: 048
     Dates: start: 20180502, end: 20190104
  7. BAIXIN PICTURE [Concomitant]
  8. INDOPAMINE [Concomitant]
  9. LENVATINIB [Suspect]
     Active Substance: LENVATINIB
     Route: 048
     Dates: start: 20171102, end: 20180428
  10. MUCOSOLVAN [Concomitant]
     Active Substance: AMBROXOL HYDROCHLORIDE
  11. LENVATINIB [Suspect]
     Active Substance: LENVATINIB
     Indication: THYROID CANCER
     Route: 048
     Dates: start: 20170920, end: 20171030
  12. ZUOKE [Concomitant]
     Active Substance: LEVOFLOXACIN
  13. PANTOPRAZOLE [Concomitant]
     Active Substance: PANTOPRAZOLE
  14. ALANYL GLUTAMINE [Concomitant]
     Active Substance: ALANYL GLUTAMINE
  15. MIXED SUGAR ELECTROLYTE [Concomitant]
  16. ACERTIL [Concomitant]
     Active Substance: PERINDOPRIL ARGININE
  17. APPRAZOLE [Concomitant]

REACTIONS (3)
  - Enteritis [Recovering/Resolving]
  - Gastrointestinal haemorrhage [Recovered/Resolved]
  - Upper respiratory tract infection [Recovered/Resolved]

NARRATIVE: CASE EVENT DATE: 20180121
